FAERS Safety Report 25096568 (Version 1)
Quarter: 2025Q1

REPORT INFORMATION
  Report Type: Spontaneous
  Country: US (occurrence: US)
  Receive Date: 20250319
  Receipt Date: 20250319
  Transmission Date: 20250409
  Serious: Yes (Other)
  Sender: NOVARTIS
  Company Number: US-002147023-NVSC2025US042836

PATIENT
  Age: 66 Year
  Sex: Female

DRUGS (13)
  1. FEMARA [Suspect]
     Active Substance: LETROZOLE
     Indication: Breast cancer recurrent
     Route: 065
     Dates: start: 202006
  2. FEMARA [Suspect]
     Active Substance: LETROZOLE
     Indication: Hormone receptor positive breast cancer
     Route: 065
     Dates: start: 20200711
  3. FEMARA [Suspect]
     Active Substance: LETROZOLE
     Indication: Metastases to lung
     Route: 065
     Dates: start: 20201108
  4. FEMARA [Suspect]
     Active Substance: LETROZOLE
     Route: 065
     Dates: start: 2021
  5. FEMARA [Suspect]
     Active Substance: LETROZOLE
     Route: 065
     Dates: start: 2022
  6. FEMARA [Suspect]
     Active Substance: LETROZOLE
     Route: 065
     Dates: start: 2024
  7. IBRANCE [Suspect]
     Active Substance: PALBOCICLIB
     Indication: Breast cancer recurrent
     Route: 065
     Dates: start: 202006
  8. IBRANCE [Suspect]
     Active Substance: PALBOCICLIB
     Indication: Hormone receptor positive HER2 negative breast cancer
     Route: 065
     Dates: start: 20200711
  9. IBRANCE [Suspect]
     Active Substance: PALBOCICLIB
     Route: 065
     Dates: start: 20201108
  10. IBRANCE [Suspect]
     Active Substance: PALBOCICLIB
     Route: 065
     Dates: start: 2021
  11. IBRANCE [Suspect]
     Active Substance: PALBOCICLIB
     Route: 065
     Dates: start: 2022
  12. IBRANCE [Suspect]
     Active Substance: PALBOCICLIB
     Route: 065
     Dates: start: 2024
  13. IBRANCE [Suspect]
     Active Substance: PALBOCICLIB
     Route: 065
     Dates: start: 2024

REACTIONS (18)
  - Breast cancer recurrent [Unknown]
  - Myalgia [Unknown]
  - Vitamin D decreased [Unknown]
  - Pruritus [Recovered/Resolved]
  - Blister [Unknown]
  - Hot flush [Unknown]
  - Ear pruritus [Unknown]
  - Abdominal hernia [Unknown]
  - Pain in extremity [Recovered/Resolved]
  - Swelling [Unknown]
  - Osteopenia [Unknown]
  - Acne [Unknown]
  - Abdominal distension [Unknown]
  - Rash [Recovered/Resolved]
  - COVID-19 [Unknown]
  - Alopecia [Unknown]
  - Central obesity [Unknown]
  - Product dose omission issue [Unknown]

NARRATIVE: CASE EVENT DATE: 20200722
